FAERS Safety Report 9107059 (Version 2)
Quarter: 2013Q1

REPORT INFORMATION
  Report Type: Spontaneous
  Country: FI (occurrence: FI)
  Receive Date: 20130221
  Receipt Date: 20130301
  Transmission Date: 20140127
  Serious: Yes (Hospitalization)
  Sender: FDA-Public Use
  Company Number: FI-009507513-1302FIN009530

PATIENT
  Age: 71 Year
  Sex: Female

DRUGS (2)
  1. JANUMET [Suspect]
     Indication: DIABETES MELLITUS
     Dosage: 100/1700 MG, BID
     Route: 048
     Dates: start: 201211, end: 201212
  2. ORAMET [Concomitant]
     Indication: DIABETES MELLITUS
     Dosage: 500 MG, BID
     Route: 048
     Dates: end: 201211

REACTIONS (2)
  - Abdominal symptom [Unknown]
  - Chest pain [Unknown]
